FAERS Safety Report 7848091 (Version 2)
Quarter: 2013Q2

REPORT INFORMATION
  Report Type: Spontaneous
  Country: BR (occurrence: BR)
  Receive Date: 20110309
  Receipt Date: 20130412
  Transmission Date: 20140414
  Serious: Yes (Death, Other)
  Sender: FDA-Public Use
  Company Number: PHHY2011BR18708

PATIENT
  Age: 54 Year
  Sex: Female

DRUGS (1)
  1. AMIODARONE [Suspect]
     Indication: VENTRICULAR TACHYCARDIA

REACTIONS (3)
  - American trypanosomiasis [Fatal]
  - Hyperthyroidism [Recovering/Resolving]
  - Goitre [Recovering/Resolving]
